FAERS Safety Report 23948461 (Version 1)
Quarter: 2024Q2

REPORT INFORMATION
  Report Type: Report from Study
  Country: ZA (occurrence: ZA)
  Receive Date: 20240607
  Receipt Date: 20240607
  Transmission Date: 20240716
  Serious: Yes (Death)
  Sender: FDA-Public Use
  Company Number: ZA-ABBVIE-5789809

PATIENT
  Age: 17 Year
  Sex: Male

DRUGS (3)
  1. BOTOX [Suspect]
     Active Substance: ONABOTULINUMTOXINA
     Indication: Cerebral palsy
     Dosage: TIME INTERVAL: AS NECESSARY: TOTAL DOSE 300U (200+100). FORM STRENGTH: 200 UNIT, FREQUENCY EVERY ...
     Route: 065
     Dates: start: 20220822, end: 20220822
  2. BOTOX [Suspect]
     Active Substance: ONABOTULINUMTOXINA
     Indication: Cerebral palsy
     Dosage: TIME INTERVAL: AS NECESSARY: TOTAL DOSE 300U (200+100), FREQUENCY EVERY 4 MONTH, FORM STRENGTH: 1...
     Route: 065
     Dates: start: 20230822, end: 20230822
  3. BOTOX [Suspect]
     Active Substance: ONABOTULINUMTOXINA
     Indication: Cerebral palsy
     Dosage: TIME INTERVAL: AS NECESSARY: TOTAL DOSE 300U (200+100). FORM STRENGTH: 200 UNIT, FREQUENCY EVERY ...
     Route: 065
     Dates: start: 20240220, end: 20240220

REACTIONS (1)
  - Death [Fatal]

NARRATIVE: CASE EVENT DATE: 20240524
